FAERS Safety Report 13069703 (Version 1)
Quarter: 2016Q4

REPORT INFORMATION
  Report Type: Spontaneous
  Country: US (occurrence: US)
  Receive Date: 20161228
  Receipt Date: 20161228
  Transmission Date: 20170207
  Serious: No
  Sender: FDA-Public Use
  Company Number: US-BAYER-2016-245242

PATIENT
  Age: 66 Year
  Sex: Female

DRUGS (1)
  1. GADAVIST [Suspect]
     Active Substance: GADOBUTROL
     Indication: NUCLEAR MAGNETIC RESONANCE IMAGING
     Dosage: 8.2 ML, ONCE
     Dates: start: 20161221, end: 20161221

REACTIONS (3)
  - Paraesthesia oral [Unknown]
  - Anxiety [Unknown]
  - Eye swelling [Unknown]

NARRATIVE: CASE EVENT DATE: 20161221
